FAERS Safety Report 10337535 (Version 1)
Quarter: 2014Q3

REPORT INFORMATION
  Report Type: Spontaneous
  Country: US (occurrence: US)
  Receive Date: 20140724
  Receipt Date: 20140724
  Transmission Date: 20150326
  Serious: No
  Sender: FDA-Public Use
  Company Number: US-009507513-1406USA011291

PATIENT
  Age: 25 Year
  Sex: Female

DRUGS (2)
  1. REBETOL [Suspect]
     Active Substance: RIBAVIRIN
     Dosage: 1200 MG, FREQUENCY UNKNOWN
     Route: 048
     Dates: start: 20081204, end: 20090402
  2. PEGINTRON [Suspect]
     Active Substance: PEGINTERFERON ALFA-2B
     Dosage: 180/.5 MCG/MG/WK
     Dates: start: 20081204, end: 20090402

REACTIONS (1)
  - Exposure during pregnancy [Unknown]
